FAERS Safety Report 4311319-7 (Version None)
Quarter: 2004Q1

REPORT INFORMATION
  Report Type: 
  Country: None (occurrence: None)
  Receive Date: 20040304
  Receipt Date: 20031219
  Transmission Date: 20041129
  Serious: Yes (Hospitalization)
  Sender: FDA-Public Use
  Company Number: JP-BRISTOL-MYERS SQUIBB COMPANY-12465373

PATIENT
  Age: 66 Year
  Sex: Female

DRUGS (7)
  1. MEVALOTIN TABS 20 MG [Suspect]
     Indication: HYPERLIPIDAEMIA
     Route: 048
     Dates: start: 19980201, end: 20031218
  2. DIGOSIN [Suspect]
     Indication: ATRIAL FIBRILLATION
     Route: 048
     Dates: start: 19980201, end: 20031218
  3. ASPIRIN [Suspect]
     Indication: ATRIAL FIBRILLATION
     Dates: start: 19980201, end: 20031218
  4. METHIMAZOLE [Suspect]
     Indication: HYPERTHYROIDISM
     Route: 048
     Dates: start: 19980201, end: 20031218
  5. LASIX [Suspect]
     Indication: CARDIAC FAILURE
     Route: 048
     Dates: start: 20000511
  6. LONGES [Suspect]
     Indication: CARDIAC FAILURE
     Route: 048
     Dates: start: 19980201
  7. WARFARIN SODIUM [Concomitant]
     Dates: start: 20000217, end: 20031218

REACTIONS (6)
  - BLOOD DISORDER [None]
  - BLOOD LACTATE DEHYDROGENASE INCREASED [None]
  - CARDIAC FAILURE [None]
  - IDIOPATHIC THROMBOCYTOPENIC PURPURA [None]
  - MYELODYSPLASTIC SYNDROME [None]
  - THROMBOCYTOPENIA [None]
